FAERS Safety Report 12428522 (Version 1)
Quarter: 2016Q2

REPORT INFORMATION
  Report Type: Spontaneous
  Country: US (occurrence: US)
  Receive Date: 20160602
  Receipt Date: 20160602
  Transmission Date: 20160815
  Serious: No
  Sender: FDA-Public Use
  Company Number: US-BAUSCH-BL-2016-001403

PATIENT
  Sex: Female
  Weight: 57 kg

DRUGS (1)
  1. ELIDEL [Suspect]
     Active Substance: PIMECROLIMUS
     Indication: THERAPEUTIC SKIN CARE TOPICAL
     Route: 061
     Dates: start: 20160112

REACTIONS (2)
  - Application site pain [Not Recovered/Not Resolved]
  - Breast feeding [Unknown]

NARRATIVE: CASE EVENT DATE: 20160112
